FAERS Safety Report 7108123-3 (Version None)
Quarter: 2010Q4

REPORT INFORMATION
  Report Type: 
  Country: None (occurrence: None)
  Receive Date: 20101115
  Receipt Date: 20101115
  Transmission Date: 20110411
  Serious: Yes (Life-Threatening)
  Sender: FDA-Public Use
  Company Number: None

PATIENT
  Sex: Female
  Weight: 55.2481 kg

DRUGS (2)
  1. JANUVIA 100 MG EXPRESS SCRIPTS 3684 MARSHALL LANE, BENSALEM, PA 19020 [Suspect]
     Indication: DIABETES MELLITUS
     Dosage: 100 MG ONCE A DAY PO
     Route: 048
     Dates: start: 20100201
  2. JANUVIA 100 MG EXPRESS SCRIPTS 3684 MARSHALL LANE, BENSALEM, PA 19020 [Suspect]
     Indication: DIABETES MELLITUS
     Dosage: 100 MG ONCE A DAY PO
     Route: 048
     Dates: start: 20100801

REACTIONS (1)
  - BLOOD PRESSURE INCREASED [None]
